FAERS Safety Report 15243119 (Version 1)
Quarter: 2018Q3

REPORT INFORMATION
  Report Type: Spontaneous
  Country: US (occurrence: US)
  Receive Date: 20180712
  Receipt Date: 20180712
  Transmission Date: 20181010
  Serious: Yes (Life-Threatening, Hospitalization)
  Sender: FDA-Public Use
  Company Number: None

PATIENT
  Age: 53 Year
  Sex: Female
  Weight: 76.5 kg

DRUGS (2)
  1. BACTINE [Suspect]
     Active Substance: BENZALKONIUM CHLORIDE\LIDOCAINE
     Dates: start: 20180619, end: 20180619
  2. UNISOM SLEEP AID [Concomitant]

REACTIONS (8)
  - Swelling [None]
  - Dyspnoea [None]
  - Swelling face [None]
  - Nasal pruritus [None]
  - Lacrimation increased [None]
  - Peripheral swelling [None]
  - Pruritus [None]
  - Pharyngeal oedema [None]

NARRATIVE: CASE EVENT DATE: 20180619
